FAERS Safety Report 13355468 (Version 3)
Quarter: 2018Q1

REPORT INFORMATION
  Report Type: Spontaneous
  Country: US (occurrence: US)
  Receive Date: 20170321
  Receipt Date: 20180212
  Transmission Date: 20180508
  Serious: Yes (Other)
  Sender: FDA-Public Use
  Company Number: US-PFIZER INC-2017118487

PATIENT
  Age: 52 Year
  Sex: Female

DRUGS (2)
  1. ATORVASTATIN CALCIUM. [Suspect]
     Active Substance: ATORVASTATIN CALCIUM
     Indication: HYPERCHOLESTEROLAEMIA
     Dosage: 40 MG, 1X/DAY
  2. ATORVASTATIN CALCIUM. [Suspect]
     Active Substance: ATORVASTATIN CALCIUM
     Indication: BLOOD CHOLESTEROL INCREASED

REACTIONS (3)
  - Hepatic enzyme increased [Recovered/Resolved]
  - Drug ineffective [Unknown]
  - Drug hypersensitivity [Recovered/Resolved]
